FAERS Safety Report 7189878-9 (Version None)
Quarter: 2010Q4

REPORT INFORMATION
  Report Type: 
  Country: None (occurrence: None)
  Receive Date: 20101223
  Receipt Date: 20101213
  Transmission Date: 20110411
  Serious: Yes (Hospitalization)
  Sender: FDA-Public Use
  Company Number: HU-ELI_LILLY_AND_COMPANY-HU201012004269

PATIENT
  Age: 63 Year
  Sex: Female

DRUGS (4)
  1. FORTEO [Suspect]
     Dosage: 20UG/80UL, DAILY (1/D)
     Route: 058
     Dates: start: 20100901
  2. FOSAMAX [Concomitant]
     Dates: start: 20080101, end: 20100801
  3. MEDROL [Concomitant]
  4. ORAL ANTIDIABETICS [Concomitant]

REACTIONS (1)
  - RIB FRACTURE [None]
